FAERS Safety Report 18127622 (Version 1)
Quarter: 2020Q3

REPORT INFORMATION
  Report Type: Spontaneous
  Country: US (occurrence: US)
  Receive Date: 20200810
  Receipt Date: 20200810
  Transmission Date: 20201103
  Serious: No
  Sender: FDA-Public Use
  Company Number: US-009507513-2007USA011694

PATIENT
  Age: 46 Year
  Sex: Male

DRUGS (1)
  1. PREGNYL [Suspect]
     Active Substance: CHORIOGONADOTROPIN ALFA
     Dosage: DOSE: 500 UNITS, MONDAY, WEDNESDAY AND FRIDAY (TIW); STRENGTH: 10,000 USP UNITS
     Dates: start: 20200724

REACTIONS (2)
  - Product storage error [Unknown]
  - No adverse event [Unknown]

NARRATIVE: CASE EVENT DATE: 20200727
